FAERS Safety Report 11261196 (Version 1)
Quarter: 2015Q3

REPORT INFORMATION
  Report Type: Spontaneous
  Country: US (occurrence: US)
  Receive Date: 20150710
  Receipt Date: 20150710
  Transmission Date: 20151125
  Serious: No
  Sender: FDA-Public Use
  Company Number: US-PURDUE-USA-2015-0120922

PATIENT
  Sex: Male

DRUGS (1)
  1. BUTRANS [Suspect]
     Active Substance: BUPRENORPHINE
     Indication: BACK PAIN
     Dosage: 5 MCG/HR, WEEKLY
     Route: 062
     Dates: start: 20150202

REACTIONS (6)
  - Hypoaesthesia [Unknown]
  - Pain in extremity [Unknown]
  - Asthenia [Unknown]
  - Dry mouth [Unknown]
  - Constipation [Unknown]
  - Inadequate analgesia [Unknown]
